FAERS Safety Report 5964891-5 (Version None)
Quarter: 2008Q4

REPORT INFORMATION
  Report Type: 
  Country: None (occurrence: None)
  Receive Date: 20081124
  Receipt Date: 20081124
  Transmission Date: 20090506
  Serious: Yes (Other)
  Sender: FDA-Public Use
  Company Number: None

PATIENT
  Sex: Female
  Weight: 71.6683 kg

DRUGS (1)
  1. ZOMETA [Suspect]
     Dates: start: 20080422, end: 20080422

REACTIONS (8)
  - ARTHRITIS [None]
  - HEADACHE [None]
  - JOINT SWELLING [None]
  - MOVEMENT DISORDER [None]
  - NUCHAL RIGIDITY [None]
  - OEDEMA PERIPHERAL [None]
  - PAIN [None]
  - PYREXIA [None]
